FAERS Safety Report 7336751-9 (Version None)
Quarter: 2011Q1

REPORT INFORMATION
  Report Type: 
  Country: None (occurrence: None)
  Receive Date: 20110308
  Receipt Date: 20110224
  Transmission Date: 20110831
  Serious: No
  Sender: FDA-Public Use
  Company Number: US-BIOGENIDEC-2011BI004559

PATIENT
  Age: 56 Year
  Sex: Female

DRUGS (3)
  1. AMPYRA [Concomitant]
     Indication: GAIT DISTURBANCE
     Dates: start: 20101201, end: 20110101
  2. TYSABRI [Suspect]
     Indication: MULTIPLE SCLEROSIS
     Route: 042
     Dates: start: 20101208
  3. PRASTERONE [Concomitant]
     Dates: start: 20101201, end: 20110101

REACTIONS (4)
  - JOINT SWELLING [None]
  - PERSONALITY CHANGE [None]
  - IRRITABILITY [None]
  - ALOPECIA [None]
